FAERS Safety Report 19890200 (Version 1)
Quarter: 2021Q3

REPORT INFORMATION
  Report Type: Spontaneous
  Country: CN (occurrence: CN)
  Receive Date: 20210927
  Receipt Date: 20210927
  Transmission Date: 20211014
  Serious: Yes (Hospitalization, Other)
  Sender: FDA-Public Use
  Company Number: CN-ELI_LILLY_AND_COMPANY-CN202109005773

PATIENT
  Sex: Female
  Weight: 61 kg

DRUGS (2)
  1. METFORMIN [Concomitant]
     Active Substance: METFORMIN HYDROCHLORIDE
     Indication: TYPE 2 DIABETES MELLITUS
     Dosage: 1 DOSAGE FORM, TID
     Route: 048
  2. HUMULIN R [Suspect]
     Active Substance: INSULIN HUMAN
     Indication: TYPE 2 DIABETES MELLITUS
     Dosage: 24 INTERNATIONAL UNIT, BID
     Route: 058
     Dates: start: 2016

REACTIONS (4)
  - Cerebral infarction [Unknown]
  - Dysphemia [Unknown]
  - Cerebral haemorrhage [Unknown]
  - Memory impairment [Unknown]

NARRATIVE: CASE EVENT DATE: 202003
